FAERS Safety Report 4526378-6 (Version None)
Quarter: 2004Q4

REPORT INFORMATION
  Report Type: 
  Country: None (occurrence: None)
  Receive Date: 20041210
  Receipt Date: 20041207
  Transmission Date: 20050328
  Serious: Yes (Hospitalization, Other)
  Sender: FDA-Public Use
  Company Number: THQ2004A00665

PATIENT
  Age: 42 Year
  Sex: Female

DRUGS (2)
  1. LEUPROLIDE ACETATE [Suspect]
     Dosage: 3.75 MG (3.75 MG, 1 IN 1 M)
     Dates: start: 20031202, end: 20040102
  2. CONTRACEPTIVE COIL (INTRAUTERINE CONTRACEPTIVE DEVICE) [Concomitant]

REACTIONS (3)
  - BENIGN INTRACRANIAL HYPERTENSION [None]
  - OPTIC NERVE DISORDER [None]
  - VISUAL ACUITY REDUCED [None]
